FAERS Safety Report 13050031 (Version 1)
Quarter: 2016Q4

REPORT INFORMATION
  Report Type: Spontaneous
  Country: US (occurrence: US)
  Receive Date: 20161221
  Receipt Date: 20161221
  Transmission Date: 20170207
  Serious: Yes (Other)
  Sender: FDA-Public Use
  Company Number: US-LUNDBECK-DKLU2024102

PATIENT
  Sex: Male

DRUGS (1)
  1. NORTHERA [Suspect]
     Active Substance: DROXIDOPA
     Indication: PRODUCT USED FOR UNKNOWN INDICATION
     Route: 065

REACTIONS (17)
  - Orthostatic hypotension [Unknown]
  - Asthenia [Unknown]
  - Erectile dysfunction [Unknown]
  - Syncope [Unknown]
  - Drug dose omission [Unknown]
  - Communication disorder [Unknown]
  - Dysphagia [Unknown]
  - Hypertension [Unknown]
  - Pollakiuria [Unknown]
  - Loss of consciousness [Unknown]
  - Cognitive disorder [Unknown]
  - Abnormal dreams [Unknown]
  - Pain [Unknown]
  - Labile hypertension [Unknown]
  - Impaired self-care [Unknown]
  - Gait disturbance [Unknown]
  - Dysarthria [Unknown]
